FAERS Safety Report 25040526 (Version 1)
Quarter: 2025Q1

REPORT INFORMATION
  Report Type: Spontaneous
  Country: FR (occurrence: FR)
  Receive Date: 20250305
  Receipt Date: 20250305
  Transmission Date: 20250409
  Serious: Yes (Hospitalization, Other)
  Sender: AUROBINDO
  Company Number: FR-AFSSAPS-PO2025000153

PATIENT
  Sex: Male

DRUGS (3)
  1. LAMOTRIGINE [Suspect]
     Active Substance: LAMOTRIGINE
     Indication: Epilepsy
     Route: 048
     Dates: start: 20231031, end: 20240717
  2. PRAZEPAM [Suspect]
     Active Substance: PRAZEPAM
     Indication: Depression
     Route: 048
     Dates: start: 20231031, end: 20240717
  3. CLOMIPRAMINE [Suspect]
     Active Substance: CLOMIPRAMINE
     Indication: Depression
     Route: 048
     Dates: start: 20231031, end: 20240717

REACTIONS (3)
  - Neonatal respiratory distress [Recovered/Resolved]
  - Withdrawal syndrome [Recovered/Resolved]
  - Maternal exposure during pregnancy [Recovered/Resolved]

NARRATIVE: CASE EVENT DATE: 20240717
